FAERS Safety Report 12924782 (Version 2)
Quarter: 2016Q4

REPORT INFORMATION
  Report Type: Spontaneous
  Country: JP (occurrence: JP)
  Receive Date: 20161109
  Receipt Date: 20161206
  Transmission Date: 20170207
  Serious: Yes (Other)
  Sender: FDA-Public Use
  Company Number: JP-AMGEN-JPNSP2016157754

PATIENT
  Age: 73 Year
  Sex: Female

DRUGS (1)
  1. PRALIA [Suspect]
     Active Substance: DENOSUMAB
     Indication: OSTEOPOROSIS
     Dosage: 60 MG, UNK
     Route: 058

REACTIONS (4)
  - Feeling abnormal [Unknown]
  - Hypocalcaemia [Unknown]
  - Electrocardiogram QT prolonged [Unknown]
  - Blood parathyroid hormone increased [Unknown]
